FAERS Safety Report 5474204-3 (Version None)
Quarter: 2007Q3

REPORT INFORMATION
  Report Type: 
  Country: None (occurrence: None)
  Receive Date: 20070928
  Receipt Date: 20070928
  Transmission Date: 20080115
  Serious: Yes (Other)
  Sender: FDA-Public Use
  Company Number: None

PATIENT
  Age: 38 Year
  Sex: Female

DRUGS (5)
  1. SCOPOLAMINE INJECTION [Suspect]
     Dates: start: 20060420, end: 20060420
  2. ATROPINE INJECTION [Suspect]
     Dates: start: 20060420, end: 20060420
  3. DONNATAL [Suspect]
     Dates: start: 20060420, end: 20060504
  4. SCOPACE (SCOPOLAMINE TABLETS) [Suspect]
     Dates: start: 20060420, end: 20060426
  5. SUDAFED 12 HOUR [Concomitant]

REACTIONS (13)
  - ALANINE AMINOTRANSFERASE INCREASED [None]
  - ALCOHOL USE [None]
  - ASPARTATE AMINOTRANSFERASE INCREASED [None]
  - BLOOD ALKALINE PHOSPHATASE INCREASED [None]
  - DRUG TOXICITY [None]
  - ECCHYMOSIS [None]
  - HEPATITIS C ANTIBODY POSITIVE [None]
  - HEPATITIS C RNA POSITIVE [None]
  - MENTAL STATUS CHANGES [None]
  - NAUSEA [None]
  - PRURITUS [None]
  - VOMITING [None]
  - WEIGHT DECREASED [None]
